FAERS Safety Report 6629632-7 (Version None)
Quarter: 2010Q1

REPORT INFORMATION
  Report Type: 
  Country: None (occurrence: None)
  Receive Date: 20100311
  Receipt Date: 20100303
  Transmission Date: 20100710
  Serious: Yes (Hospitalization)
  Sender: FDA-Public Use
  Company Number: JP-PFIZER INC-2010029465

PATIENT
  Age: 56 Year
  Sex: Female

DRUGS (6)
  1. SEIBULE [Suspect]
     Indication: DIABETES MELLITUS
     Dosage: 75 MG DAILY
     Route: 048
     Dates: start: 20091110, end: 20100302
  2. FLOMOX [Suspect]
     Dosage: 300MG DAILY
     Route: 048
     Dates: start: 20100223
  3. LORCAM [Suspect]
     Dosage: 4MG DAILY
     Route: 048
     Dates: start: 20100223
  4. MEVALOTIN [Concomitant]
     Dosage: 10 MG, UNK
     Route: 048
  5. ACTOS [Concomitant]
     Dosage: 15 MG, UNK
     Route: 048
  6. LANTUS [Concomitant]
     Dosage: 8 IU, UNK
     Route: 058

REACTIONS (1)
  - HEPATIC FUNCTION ABNORMAL [None]
